FAERS Safety Report 11414374 (Version 1)
Quarter: 2015Q3

REPORT INFORMATION
  Report Type: Report from Study
  Country: FR (occurrence: FR)
  Receive Date: 20150824
  Receipt Date: 20150824
  Transmission Date: 20151125
  Serious: Yes (Other)
  Sender: FDA-Public Use
  Company Number: FR-BRISTOL-MYERS SQUIBB COMPANY-BMS-2015-055001

PATIENT
  Sex: Female
  Weight: 70 kg

DRUGS (2)
  1. NIVOLUMAB [Suspect]
     Active Substance: NIVOLUMAB
     Indication: MALIGNANT MELANOMA
     Dosage: 10 MG, QD
     Route: 065
     Dates: start: 20150623
  2. YERVOY [Suspect]
     Active Substance: IPILIMUMAB
     Indication: MALIGNANT MELANOMA
     Dosage: UNK UNK, TOTAL
     Route: 065
     Dates: start: 20141106, end: 20150218

REACTIONS (1)
  - Gastrointestinal disorder [Recovered/Resolved]
